FAERS Safety Report 17081920 (Version 2)
Quarter: 2019Q4

REPORT INFORMATION
  Report Type: Spontaneous
  Country: GR (occurrence: GR)
  Receive Date: 20191127
  Receipt Date: 20191202
  Transmission Date: 20200122
  Serious: Yes (Other)
  Sender: FDA-Public Use
  Company Number: GR-ABBVIE-19K-066-3013504-00

PATIENT
  Age: 71 Year
  Sex: Female

DRUGS (5)
  1. VENCLYXTO [Suspect]
     Active Substance: VENETOCLAX
     Indication: ACUTE MYELOID LEUKAEMIA
     Route: 048
  2. AZACITIDINE. [Suspect]
     Active Substance: AZACITIDINE
     Indication: ACUTE MYELOID LEUKAEMIA
     Dosage: MONOTHERAPY
     Route: 065
  3. AZACITIDINE. [Suspect]
     Active Substance: AZACITIDINE
     Route: 065
  4. AZACITIDINE. [Suspect]
     Active Substance: AZACITIDINE
     Route: 065
  5. VENCLYXTO [Suspect]
     Active Substance: VENETOCLAX
     Dosage: 14 DAYS OF EVERY CYCLE
     Route: 048

REACTIONS (4)
  - Cytopenia [Recovered/Resolved]
  - Off label use [Unknown]
  - Infection [Recovered/Resolved]
  - Thrombocytosis [Unknown]
